FAERS Safety Report 18418325 (Version 2)
Quarter: 2020Q4

REPORT INFORMATION
  Report Type: Spontaneous
  Country: AU (occurrence: AU)
  Receive Date: 20201023
  Receipt Date: 20201027
  Transmission Date: 20210114
  Serious: Yes (Death, Hospitalization, Other)
  Sender: FDA-Public Use
  Company Number: AU-AMGEN-AUSSP2020169333

PATIENT
  Age: 99 Year
  Sex: Female

DRUGS (9)
  1. ASASANTIN [Concomitant]
     Active Substance: ASPIRIN\DIPYRIDAMOLE
     Indication: ISCHAEMIC STROKE
     Dosage: 200 MILLIGRAM, BID
     Route: 048
  2. RABEPRAZOLE [Concomitant]
     Active Substance: RABEPRAZOLE
     Indication: REFLUX GASTRITIS
     Dosage: 10 MG, QD
     Route: 048
  3. CORALAN [Suspect]
     Active Substance: IVABRADINE HYDROCHLORIDE
     Indication: CARDIAC FAILURE CHRONIC
     Dosage: 7.5 MILLIGRAM, BID
     Route: 048
     Dates: start: 2016, end: 20200606
  4. SPIRONOLACTONE. [Concomitant]
     Active Substance: SPIRONOLACTONE
     Indication: HYPERTENSION
     Dosage: 12.5 MG, QD
  5. CALCIUM [Concomitant]
     Active Substance: CALCIUM
     Indication: CALCIUM DEFICIENCY
     Dosage: 60 MG, UNK
  6. INDOSYL MONO [Concomitant]
     Indication: HYPERTENSION
     Dosage: 2 MILLIGRAM, QD
     Route: 048
  7. FRUSEMIDE [FUROSEMIDE SODIUM] [Concomitant]
     Indication: HYPERTENSION
     Dosage: 20 MILLIGRAM, QD
     Route: 048
  8. DIGOXIN [BETA-ACETYLDIGOXIN] [Concomitant]
     Indication: ATRIOVENTRICULAR BLOCK
     Dosage: 62.5 MUG, QD
     Route: 048
  9. ASASANTIN [Concomitant]
     Active Substance: ASPIRIN\DIPYRIDAMOLE
     Dosage: 25 MILLIGRAM, QD
     Route: 048

REACTIONS (2)
  - Death [Fatal]
  - Cerebrovascular accident [Unknown]

NARRATIVE: CASE EVENT DATE: 20200529
